FAERS Safety Report 4926732-4 (Version None)
Quarter: 2006Q1

REPORT INFORMATION
  Report Type: 
  Country: None (occurrence: None)
  Receive Date: 20060228
  Receipt Date: 20050606
  Transmission Date: 20060701
  Serious: No
  Sender: FDA-Public Use
  Company Number: US-GLAXOSMITHKLINE-A0561382A

PATIENT
  Age: 49 Year
  Sex: Female

DRUGS (6)
  1. LAMICTAL [Suspect]
     Indication: BIPOLAR DISORDER
     Dosage: 200MG PER DAY
     Route: 048
     Dates: start: 20050218
  2. BUSPAR [Concomitant]
  3. EFFEXOR [Concomitant]
  4. TOPROL [Concomitant]
  5. SYNTHROID [Concomitant]
  6. MINOCYCLINE HCL [Concomitant]

REACTIONS (1)
  - ACNE [None]
